FAERS Safety Report 7347854-7 (Version None)
Quarter: 2011Q1

REPORT INFORMATION
  Report Type: 
  Country: None (occurrence: None)
  Receive Date: 20110311
  Receipt Date: 20110302
  Transmission Date: 20110831
  Serious: Yes (Other)
  Sender: FDA-Public Use
  Company Number: CA-JNJFOC-20110302176

PATIENT
  Sex: Female
  Weight: 90.4 kg

DRUGS (2)
  1. REMICADE [Suspect]
     Indication: COLITIS ULCERATIVE
     Route: 042
  2. REMICADE [Suspect]
     Route: 042

REACTIONS (8)
  - INFUSION RELATED REACTION [None]
  - FEELING ABNORMAL [None]
  - PELVIC FRACTURE [None]
  - SPINAL FRACTURE [None]
  - FALL [None]
  - PALPITATIONS [None]
  - EYE DISORDER [None]
  - FEELING HOT [None]
